FAERS Safety Report 17774216 (Version 2)
Quarter: 2020Q2

REPORT INFORMATION
  Report Type: Spontaneous
  Country: US (occurrence: US)
  Receive Date: 20200513
  Receipt Date: 20200613
  Transmission Date: 20200714
  Serious: No
  Sender: FDA-Public Use
  Company Number: US-ASTRAZENECA-2020SE61442

PATIENT
  Sex: Female
  Weight: 90.7 kg

DRUGS (5)
  1. SYMBICORT [Suspect]
     Active Substance: BUDESONIDE\FORMOTEROL FUMARATE DIHYDRATE
     Indication: CHRONIC OBSTRUCTIVE PULMONARY DISEASE
     Dosage: 160/ 4.5 MCG ONE PUFF TWO TIMES A DAY
     Route: 055
  2. PROAIR HFA [Concomitant]
     Active Substance: ALBUTEROL SULFATE
     Indication: DYSPNOEA
     Dosage: TWO PUFFS-EVERY 4 - 6 HOURS
     Route: 055
  3. PROAIR HFA [Concomitant]
     Active Substance: ALBUTEROL SULFATE
     Indication: DYSPNOEA
     Dosage: ONE PUFF EVERY 4 HOURS
     Route: 055
  4. SYMBICORT [Suspect]
     Active Substance: BUDESONIDE\FORMOTEROL FUMARATE DIHYDRATE
     Indication: CHRONIC OBSTRUCTIVE PULMONARY DISEASE
     Dosage: 160/ 4.5 MCG ONE PUFF TWO TIMES A DAY
     Route: 055
     Dates: start: 20200407
  5. OXYGEN. [Concomitant]
     Active Substance: OXYGEN
     Dosage: OXYGEN 0.3 L PER NASAL CANNULA SINCE 4 YEARS AGO
     Route: 065

REACTIONS (3)
  - Dyspnoea exertional [Unknown]
  - Product quality issue [Unknown]
  - Drug ineffective [Unknown]
